FAERS Safety Report 4495284-8 (Version None)
Quarter: 2004Q4

REPORT INFORMATION
  Report Type: 
  Country: None (occurrence: None)
  Receive Date: 20041108
  Receipt Date: 20040830
  Transmission Date: 20050328
  Serious: No
  Sender: FDA-Public Use
  Company Number: US-GLAXOSMITHKLINE-A0523995A

PATIENT
  Age: 56 Year
  Sex: Female
  Weight: 100 kg

DRUGS (9)
  1. AVANDAMET [Suspect]
     Route: 048
  2. HYDROCHLOROTHIAZIDE [Concomitant]
     Dosage: 12.5MG UNKNOWN
     Route: 048
  3. TOPROL-XL [Concomitant]
     Dosage: 25MG UNKNOWN
     Route: 048
  4. DARVOCET [Concomitant]
     Route: 048
  5. MOBIC [Concomitant]
     Dosage: 7.5MG AS REQUIRED
     Route: 048
  6. CARDIZEM [Concomitant]
     Dosage: 240MG UNKNOWN
     Route: 048
  7. LISINOPRIL [Concomitant]
     Route: 065
  8. LIPITOR [Concomitant]
     Dosage: 10MG AT NIGHT
     Route: 065
  9. COUMADIN [Concomitant]

REACTIONS (9)
  - BLOOD PRESSURE DECREASED [None]
  - DIARRHOEA [None]
  - DISABILITY [None]
  - DYSGEUSIA [None]
  - FATIGUE [None]
  - FEELING ABNORMAL [None]
  - NAUSEA [None]
  - SOMNOLENCE [None]
  - VOMITING [None]
